FAERS Safety Report 7910757-0 (Version None)
Quarter: 2011Q4

REPORT INFORMATION
  Report Type: 
  Country: None (occurrence: None)
  Receive Date: 20111112
  Receipt Date: 20111102
  Transmission Date: 20120403
  Serious: Yes (Hospitalization, Other)
  Sender: FDA-Public Use
  Company Number: US-ASTRAZENECA-2011SE48844

PATIENT
  Age: 56 Year
  Sex: Male
  Weight: 101.2 kg

DRUGS (35)
  1. WELLBUTRIN [Concomitant]
  2. WELLBUTRIN [Concomitant]
     Route: 048
  3. CITRACAL PLUS D [Concomitant]
     Dosage: 315 MG - 200 UNIT TAB, TWO TABLETS DAILY
     Route: 048
  4. TRAMADOL HCL [Concomitant]
  5. ZONISAMIDE [Concomitant]
     Route: 048
  6. PANTOTHENIC ACID [Concomitant]
     Route: 048
  7. LECITHIN [Concomitant]
     Route: 048
  8. VANDETANIB [Suspect]
     Indication: THYROID CANCER
     Route: 048
     Dates: start: 20110812
  9. VANDETANIB [Suspect]
     Route: 048
  10. MUCINEX D [Concomitant]
     Route: 048
  11. MELATONIN [Concomitant]
     Route: 048
  12. MULTIVITAMIN AND MINERAL [Concomitant]
     Dosage: ONE TABLET DAILY
     Route: 048
  13. CALCIUM CARBONATE [Concomitant]
     Route: 048
  14. ASCORBIC ACID [Concomitant]
     Route: 048
  15. ZONISAMIDE [Concomitant]
     Route: 048
  16. CALCIUM MAGNESIUM [Concomitant]
     Dosage: 333-133 MG DAILY
     Route: 048
  17. PRILOSEC [Suspect]
     Route: 048
  18. ALLEGRA D 24 HOUR [Concomitant]
     Dosage: 60-120 MG TAB, ONE TABLET TWO TIMES A DAY,
     Route: 048
  19. LOVAZA [Concomitant]
     Route: 048
  20. TRAMADOL HCL [Concomitant]
     Route: 048
  21. SYNTHROID [Concomitant]
     Route: 048
  22. LORATADINE [Concomitant]
     Route: 048
  23. KLONOPIN [Concomitant]
     Route: 048
  24. GLUCOSAMINE/CHONDROITIN [Concomitant]
     Dosage: 600-750 MG, TWO TABLETS DAILY
     Route: 048
  25. MUCINEX D [Concomitant]
     Route: 048
  26. VANDETANIB [Suspect]
     Route: 048
     Dates: start: 20110801
  27. COLACE [Concomitant]
     Route: 048
  28. COLACE [Concomitant]
     Route: 048
  29. LIDODERM [Concomitant]
     Dosage: ONE PATCH EVERY 12 HOURS
     Route: 062
  30. VITAMIN D [Concomitant]
     Route: 048
  31. CALCIUM [Concomitant]
     Route: 048
  32. PROZAC [Concomitant]
     Route: 048
  33. ASCORBIC ACID [Concomitant]
     Route: 048
  34. ZOMETA [Concomitant]
     Dosage: AS PREVIOUSLY
  35. NASONEX [Concomitant]
     Dosage: TWO SPRAYS EACH NOSTRIL DAILY
     Route: 045

REACTIONS (40)
  - FAECAL INCONTINENCE [None]
  - FALL [None]
  - BLOOD CALCITONIN INCREASED [None]
  - THYROID CANCER [None]
  - OSTEOLYSIS [None]
  - GASTROOESOPHAGEAL REFLUX DISEASE [None]
  - SPINAL COLUMN STENOSIS [None]
  - HYPOTHYROIDISM [None]
  - INCORRECT DOSE ADMINISTERED [None]
  - URINARY INCONTINENCE [None]
  - CONTUSION [None]
  - PARAESTHESIA [None]
  - METASTASES TO BONE MARROW [None]
  - ELECTROCARDIOGRAM QT PROLONGED [None]
  - SEROMA [None]
  - DYSPHEMIA [None]
  - DIARRHOEA [None]
  - CONFUSIONAL STATE [None]
  - FATIGUE [None]
  - HAEMANGIOMA OF LIVER [None]
  - MUSCULAR WEAKNESS [None]
  - MENTAL STATUS CHANGES [None]
  - NERVOUSNESS [None]
  - MEMORY IMPAIRMENT [None]
  - NAUSEA [None]
  - THYROID CANCER METASTATIC [None]
  - METASTASES TO BONE [None]
  - HEAD AND NECK CANCER [None]
  - SPINAL CORD COMPRESSION [None]
  - BLOOD THYROID STIMULATING HORMONE INCREASED [None]
  - GAIT DISTURBANCE [None]
  - BACK PAIN [None]
  - ARTHRALGIA [None]
  - HEAD AND NECK CANCER STAGE III [None]
  - HEPATIC LESION [None]
  - HAND FRACTURE [None]
  - METABOLIC ENCEPHALOPATHY [None]
  - AMNESIA [None]
  - TRACHEAL STENOSIS [None]
  - RESTLESSNESS [None]
